FAERS Safety Report 20136551 (Version 3)
Quarter: 2022Q1

REPORT INFORMATION
  Report Type: Report from Study
  Country: US (occurrence: US)
  Receive Date: 20211201
  Receipt Date: 20220113
  Transmission Date: 20220424
  Serious: Yes (Other)
  Sender: FDA-Public Use
  Company Number: US-REGENERON PHARMACEUTICALS, INC.-2021-105657

PATIENT
  Age: 63 Year
  Sex: Female

DRUGS (5)
  1. CASIRIVIMAB\IMDEVIMAB [Suspect]
     Active Substance: CASIRIVIMAB\IMDEVIMAB
     Indication: COVID-19
     Dosage: 1200 MG, SINGLE
     Route: 042
     Dates: start: 20211119, end: 20211119
  2. BROMFED DM [Concomitant]
     Active Substance: BROMPHENIRAMINE MALEATE\DEXTROMETHORPHAN HYDROBROMIDE\PSEUDOEPHEDRINE HYDROCHLORIDE
     Indication: Product used for unknown indication
     Dosage: 10 ML Q 6 HOURS PRN
     Route: 048
  3. DEXTROMETHORPHAN\PROMETHAZINE [Concomitant]
     Active Substance: DEXTROMETHORPHAN\PROMETHAZINE
     Indication: Product used for unknown indication
     Dosage: 15MG-6.25MG/5ML ORAL SYRUP 5 ML Q 6 HOURS PRN
     Route: 048
  4. FLONASE                            /00908302/ [Concomitant]
     Indication: Product used for unknown indication
     Dosage: 50 MCQ/INHALATION NASAL SPRAY 2 SPRAYS NASAL BID
     Route: 045
  5. IBUPROFEN [Concomitant]
     Active Substance: IBUPROFEN
     Indication: Product used for unknown indication
     Dosage: 1 TAB PO Q 6 HOURS PRN
     Route: 048

REACTIONS (7)
  - Nausea [Recovered/Resolved]
  - Flushing [Recovered/Resolved]
  - Chest discomfort [Recovered/Resolved]
  - Dyspnoea [Recovered/Resolved]
  - Back pain [Recovered/Resolved]
  - Anaphylactic reaction [Recovered/Resolved]
  - Infusion related reaction [Recovered/Resolved]

NARRATIVE: CASE EVENT DATE: 20211119
